FAERS Safety Report 7266605-8 (Version None)
Quarter: 2011Q1

REPORT INFORMATION
  Report Type: 
  Country: None (occurrence: None)
  Receive Date: 20110131
  Receipt Date: 20110121
  Transmission Date: 20110831
  Serious: Yes (Hospitalization)
  Sender: FDA-Public Use
  Company Number: IT-GENENTECH-312882

PATIENT
  Sex: Male

DRUGS (5)
  1. MABTHERA [Suspect]
     Indication: PRODUCT USED FOR UNKNOWN INDICATION
     Dosage: 1000 MG, UNK
     Route: 042
     Dates: start: 20080301, end: 20080901
  2. METHOTREXATE [Suspect]
     Indication: RHEUMATOID ARTHRITIS
     Dosage: 7.5 MG, UNK
     Route: 030
     Dates: start: 20081101, end: 20101001
  3. ORENCIA [Suspect]
     Indication: RHEUMATOID ARTHRITIS
     Dosage: 750 MG, UNK
     Route: 042
     Dates: start: 20081101, end: 20101001
  4. MEDROL [Concomitant]
     Indication: RHEUMATOID ARTHRITIS
     Dosage: 4 MG, UNK
     Route: 048
  5. ARCOXIA [Concomitant]
     Indication: RHEUMATOID ARTHRITIS
     Dosage: 90 MG, UNK
     Route: 048

REACTIONS (1)
  - B-CELL LYMPHOMA [None]
